FAERS Safety Report 19722683 (Version 1)
Quarter: 2021Q3

REPORT INFORMATION
  Report Type: Report from Study
  Country: US (occurrence: US)
  Receive Date: 20210819
  Receipt Date: 20210819
  Transmission Date: 20211014
  Serious: No
  Sender: FDA-Public Use
  Company Number: US-KYOWAKIRIN-2021BKK014088

PATIENT

DRUGS (2)
  1. CRYSVITA [Suspect]
     Active Substance: BUROSUMAB-TWZA
     Indication: HEREDITARY HYPOPHOSPHATAEMIC RICKETS
     Dosage: 2 ML, EVERY OTHER WEEK
     Route: 058
     Dates: start: 20190510
  2. CRYSVITA [Suspect]
     Active Substance: BUROSUMAB-TWZA
     Indication: PHOSPHORUS METABOLISM DISORDER
     Dosage: 2 ML, EVERY OTHER WEEK
     Route: 058

REACTIONS (1)
  - Influenza [Unknown]
